FAERS Safety Report 11589257 (Version 1)
Quarter: 2015Q4

REPORT INFORMATION
  Report Type: Spontaneous
  Country: US (occurrence: None)
  Receive Date: 20151001
  Receipt Date: 20151001
  Transmission Date: 20160304
  Serious: No
  Sender: FDA-Public Use
  Company Number: None

PATIENT
  Age: 61 Year
  Sex: Female

DRUGS (1)
  1. COPAXONE [Suspect]
     Active Substance: GLATIRAMER ACETATE
     Indication: MULTIPLE SCLEROSIS
     Route: 058
     Dates: start: 20150909, end: 20150916

REACTIONS (7)
  - Chills [None]
  - Abasia [None]
  - Asthenia [None]
  - Muscle spasms [None]
  - Mobility decreased [None]
  - Vomiting [None]
  - Tremor [None]

NARRATIVE: CASE EVENT DATE: 20150916
